FAERS Safety Report 4336113-2 (Version None)
Quarter: 2004Q2

REPORT INFORMATION
  Report Type: 
  Country: None (occurrence: None)
  Receive Date: 20040409
  Receipt Date: 20040311
  Transmission Date: 20050107
  Serious: Yes (Disabling, Other)
  Sender: FDA-Public Use
  Company Number: BE-MERCK-0403BEL00018

PATIENT
  Age: 61 Year
  Sex: Male
  Weight: 83 kg

DRUGS (13)
  1. FELODIPINE [Concomitant]
     Route: 048
  2. PROSCAR [Suspect]
     Indication: BENIGN PROSTATIC HYPERPLASIA
     Route: 048
     Dates: start: 20030507, end: 20030820
  3. LACTULOSE [Concomitant]
     Route: 048
  4. LORMETAZEPAM [Concomitant]
     Route: 048
  5. MAGNESIUM (UNSPECIFIED) [Concomitant]
     Route: 048
  6. METOPROLOL TARTRATE [Concomitant]
     Route: 048
  7. MYCOPHENOLATE MOFETIL [Concomitant]
     Route: 048
  8. OMEPRAZOLE [Concomitant]
     Route: 048
  9. PREDNISOLONE [Suspect]
     Route: 048
  10. PSYLLIUM HUSK [Concomitant]
     Route: 048
  11. ZOCOR [Concomitant]
     Route: 048
  12. ALFUZOSIN HYDROCHLORIDE [Concomitant]
     Route: 048
  13. CYCLOSPORINE [Suspect]
     Route: 048

REACTIONS (2)
  - MYOPATHY [None]
  - NEUROPATHY [None]
